FAERS Safety Report 4559088-X (Version None)
Quarter: 2005Q1

REPORT INFORMATION
  Report Type: 
  Country: None (occurrence: None)
  Receive Date: 20050124
  Receipt Date: 20050110
  Transmission Date: 20050727
  Serious: Yes (Hospitalization)
  Sender: FDA-Public Use
  Company Number: 200510117FR

PATIENT
  Age: 31 Year
  Sex: Female

DRUGS (10)
  1. RIFAMPIN AND ISONIAZID [Suspect]
     Route: 048
     Dates: start: 20041201
  2. METHOTREXATE [Concomitant]
  3. ACTONEL [Concomitant]
  4. CHRONO-INDOCID [Concomitant]
  5. ADVIL [Concomitant]
  6. HUMIRA                                  /USA/ [Concomitant]
  7. DAFALGAN [Concomitant]
  8. PLAQUENIL [Concomitant]
  9. VITAMIN D3 [Concomitant]
  10. SPECIAFOLDINE [Concomitant]

REACTIONS (10)
  - ANOREXIA [None]
  - ARTHRALGIA [None]
  - ASTHENIA [None]
  - BACK PAIN [None]
  - DIZZINESS [None]
  - FATIGUE [None]
  - PARAESTHESIA [None]
  - RASH PAPULAR [None]
  - RESPIRATORY DISORDER [None]
  - WEIGHT DECREASED [None]
